FAERS Safety Report 20634628 (Version 3)
Quarter: 2022Q2

REPORT INFORMATION
  Report Type: Spontaneous
  Country: US (occurrence: US)
  Receive Date: 20220325
  Receipt Date: 20220421
  Transmission Date: 20220721
  Serious: No
  Sender: FDA-Public Use
  Company Number: US-UNITED THERAPEUTICS-UNT-2022-004297

PATIENT
  Sex: Male
  Weight: 79.365 kg

DRUGS (6)
  1. TYVASO [Suspect]
     Active Substance: TREPROSTINIL
     Indication: Pulmonary arterial hypertension
     Dosage: UNK
     Dates: start: 20211230
  2. TYVASO [Suspect]
     Active Substance: TREPROSTINIL
     Dosage: 18-54 ?G, QID
  3. TYVASO [Suspect]
     Active Substance: TREPROSTINIL
     Dosage: 18-90 ?G, QID
  4. TYVASO [Suspect]
     Active Substance: TREPROSTINIL
     Dosage: 90 ?G (PER TREATMENT SESSION)
  5. TYVASO [Suspect]
     Active Substance: TREPROSTINIL
     Dosage: 18-90 ?G, QID
  6. SILDENAFIL CITRATE [Concomitant]
     Active Substance: SILDENAFIL CITRATE
     Indication: Product used for unknown indication
     Dosage: UNK
     Route: 065

REACTIONS (5)
  - Productive cough [Recovering/Resolving]
  - Sputum discoloured [Not Recovered/Not Resolved]
  - Secretion discharge [Unknown]
  - Cough [Recovering/Resolving]
  - Off label use [Unknown]
